FAERS Safety Report 4518654-8 (Version None)
Quarter: 2004Q4

REPORT INFORMATION
  Report Type: 
  Country: None (occurrence: None)
  Receive Date: 20041029
  Receipt Date: 20040825
  Transmission Date: 20050328
  Serious: No
  Sender: FDA-Public Use
  Company Number: 200416401US

PATIENT
  Sex: Female

DRUGS (4)
  1. KETEK [Suspect]
     Indication: SKIN INFECTION
     Dosage: 800 MG QD PO
     Route: 048
     Dates: start: 20040822, end: 20040824
  2. ACTONEL [Suspect]
     Dosage: QW
  3. BIRTH CONTROL [Concomitant]
  4. ADVIL [Concomitant]

REACTIONS (1)
  - VOMITING [None]
